FAERS Safety Report 10290771 (Version 4)
Quarter: 2014Q3

REPORT INFORMATION
  Report Type: Spontaneous
  Country: GB (occurrence: None)
  Receive Date: 20140708
  Receipt Date: 20140725
  Transmission Date: 20150326
  Serious: Yes (Death, Life-Threatening, Hospitalization, Other)
  Sender: FDA-Public Use
  Company Number: AUR-APL-2014-06280

PATIENT
  Age: 77 Year
  Sex: Female
  Weight: 89 kg

DRUGS (16)
  1. LACTULOSE (LACTULOSE) [Concomitant]
     Active Substance: LACTULOSE
  2. PARACETAMOL (PARACETAMOL) [Concomitant]
     Active Substance: ACETAMINOPHEN
  3. LANSOPRAZOLE (LANSOPRAZOLE) [Suspect]
     Active Substance: LANSOPRAZOLE
     Indication: DYSPEPSIA
     Route: 048
     Dates: start: 20131025, end: 20131125
  4. MOMETASONE [Concomitant]
     Active Substance: MOMETASONE
  5. SENNA [Concomitant]
     Active Substance: SENNA LEAF\SENNOSIDES\SENNOSIDES A AND B
  6. GLYCERIN. [Concomitant]
     Active Substance: GLYCERIN
  7. SERETIDE [Concomitant]
     Active Substance: FLUTICASONE FUROATE\SALMETEROL XINAFOATE
  8. CLOPIDOGREL [Concomitant]
     Active Substance: CLOPIDOGREL BISULFATE
  9. RAMIPRIL. [Suspect]
     Active Substance: RAMIPRIL
     Indication: MYOCARDIAL INFARCTION
     Route: 048
     Dates: start: 20130930, end: 20131125
  10. FERROUS FUMARATE [Suspect]
     Active Substance: FERROUS FUMARATE
     Indication: IRON DEFICIENCY
     Route: 048
     Dates: start: 20131025, end: 20131125
  11. ATORVASTATIN (ATORVASTATIN) [Concomitant]
     Active Substance: ATORVASTATIN
  12. SALBUTAMOL (SALBUTAMOL) [Concomitant]
     Active Substance: ALBUTEROL
  13. GTN [Concomitant]
     Active Substance: NITROGLYCERIN
  14. IVABRADINE [Suspect]
     Active Substance: IVABRADINE
     Indication: MYOCARDIAL INFARCTION
     Route: 048
     Dates: start: 20130930, end: 20131125
  15. TICAGRELOR (TICAGRELOR) [Suspect]
     Active Substance: TICAGRELOR
     Indication: THROMBOSIS IN DEVICE
     Route: 048
     Dates: start: 20131005, end: 20131125
  16. ASPIRIN (ACETYLSALICYLIC ACID) [Concomitant]
     Active Substance: ASPIRIN

REACTIONS (7)
  - Acute myocardial infarction [None]
  - Thrombosis in device [None]
  - Sudden death [None]
  - Dyspepsia [None]
  - Agranulocytosis [None]
  - Infection [None]
  - Iron deficiency [None]

NARRATIVE: CASE EVENT DATE: 20131125
